FAERS Safety Report 16739129 (Version 1)
Quarter: 2019Q3

REPORT INFORMATION
  Report Type: Other
  Country: RO (occurrence: RO)
  Receive Date: 20190826
  Receipt Date: 20190826
  Transmission Date: 20191005
  Serious: Yes (Hospitalization, Other)
  Sender: FDA-Public Use
  Company Number: RO-CELLTRION INC.-2019RO024013

PATIENT

DRUGS (3)
  1. ARAVA [Concomitant]
     Active Substance: LEFLUNOMIDE
     Indication: RHEUMATOID ARTHRITIS
     Route: 065
  2. METHOTREXATE. [Concomitant]
     Active Substance: METHOTREXATE
     Indication: RHEUMATOID ARTHRITIS
     Route: 065
  3. RITUXIMAB (UNKNOWN) [Suspect]
     Active Substance: RITUXIMAB
     Indication: RHEUMATOID ARTHRITIS
     Dosage: 500 MG, ONCE AT 6 MONTHS, THEN ONCE PER YEAR DURING 2 YEARS
     Route: 042

REACTIONS (6)
  - Gallbladder operation [Unknown]
  - Hip surgery [Unknown]
  - Drug ineffective [Unknown]
  - Underdose [Unknown]
  - Haemoglobin decreased [Unknown]
  - Lung infection [Unknown]
